FAERS Safety Report 6043371-5 (Version None)
Quarter: 2009Q1

REPORT INFORMATION
  Report Type: 
  Country: None (occurrence: None)
  Receive Date: 20090120
  Receipt Date: 20090113
  Transmission Date: 20090719
  Serious: Yes (Other)
  Sender: FDA-Public Use
  Company Number: KR-JNJFOC-20090103284

PATIENT
  Age: 47 Year
  Sex: Female

DRUGS (2)
  1. MINOCYCLINE HCL [Suspect]
     Indication: MOUTH ULCERATION
     Route: 065
  2. MINOCYCLINE HCL [Suspect]
     Indication: APHTHOUS STOMATITIS
     Route: 065

REACTIONS (2)
  - THYROID DISORDER [None]
  - THYROID NEOPLASM [None]
